FAERS Safety Report 15533091 (Version 1)
Quarter: 2018Q4

REPORT INFORMATION
  Report Type: Spontaneous
  Country: US (occurrence: US)
  Receive Date: 20181019
  Receipt Date: 20181019
  Transmission Date: 20190205
  Serious: No
  Sender: FDA-Public Use
  Company Number: US-ALLERGAN-1825320US

PATIENT
  Sex: Female

DRUGS (1)
  1. INFED [Suspect]
     Active Substance: IRON DEXTRAN
     Indication: IRON DEFICIENCY ANAEMIA
     Dosage: 25 MG, UNK
     Route: 030
     Dates: start: 20180312

REACTIONS (8)
  - Wrong technique in product usage process [Unknown]
  - Hypotension [Recovered/Resolved]
  - Nausea [Recovered/Resolved]
  - Salivary hypersecretion [Recovered/Resolved]
  - Vomiting [Recovered/Resolved]
  - Dysgeusia [Recovered/Resolved]
  - Paraesthesia [Recovered/Resolved]
  - Dizziness [Recovered/Resolved]

NARRATIVE: CASE EVENT DATE: 201803
